FAERS Safety Report 5458650-X (Version None)
Quarter: 2007Q3

REPORT INFORMATION
  Report Type: 
  Country: None (occurrence: None)
  Receive Date: 20070919
  Receipt Date: 20070417
  Transmission Date: 20080115
  Serious: Yes (Other)
  Sender: FDA-Public Use
  Company Number: US-ASTRAZENECA-2007UW07523

PATIENT

DRUGS (1)
  1. SEROQUEL [Suspect]
     Dosage: 50-100 MG
     Route: 048

REACTIONS (1)
  - VISUAL DISTURBANCE [None]
